FAERS Safety Report 6640739-0 (Version None)
Quarter: 2010Q1

REPORT INFORMATION
  Report Type: 
  Country: None (occurrence: None)
  Receive Date: 20100318
  Receipt Date: 20100303
  Transmission Date: 20100710
  Serious: Yes (Hospitalization)
  Sender: FDA-Public Use
  Company Number: SE-BAXTER-2010BH007059

PATIENT
  Sex: Male

DRUGS (5)
  1. GAMMAGARD S/D [Suspect]
     Indication: IMMUNODEFICIENCY COMMON VARIABLE
     Route: 042
     Dates: start: 19920101, end: 20070101
  2. INSULIN ASPART [Concomitant]
     Indication: DIABETES MELLITUS
  3. ENALAPRIL MALEATE [Concomitant]
  4. ASPIRIN [Concomitant]
  5. BETA BLOCKING AGENTS [Concomitant]

REACTIONS (1)
  - CEREBRAL INFARCTION [None]
